FAERS Safety Report 24834765 (Version 1)
Quarter: 2025Q1

REPORT INFORMATION
  Report Type: Spontaneous
  Country: US (occurrence: US)
  Receive Date: 20250113
  Receipt Date: 20250113
  Transmission Date: 20250408
  Serious: Yes (Hospitalization)
  Sender: JUBILANT
  Company Number: US-JUBILANT CADISTA PHARMACEUTICALS-2024JUB00105

PATIENT
  Age: 30 Year
  Sex: Female

DRUGS (1)
  1. PREDNISONE [Suspect]
     Active Substance: PREDNISONE
     Indication: Crohn^s disease

REACTIONS (1)
  - Pneumomediastinum [Unknown]
